FAERS Safety Report 7301993-5 (Version None)
Quarter: 2011Q1

REPORT INFORMATION
  Report Type: 
  Country: None (occurrence: None)
  Receive Date: 20110218
  Receipt Date: 20110216
  Transmission Date: 20110831
  Serious: Yes (Death)
  Sender: FDA-Public Use
  Company Number: BE-ABBOTT-11P-013-0705418-00

PATIENT
  Sex: Male
  Weight: 67 kg

DRUGS (2)
  1. TICLID [Concomitant]
     Indication: CARDIOVASCULAR DISORDER
     Dates: start: 20080320
  2. LUCRIN DEPOT 11.25 MG [Suspect]
     Indication: PROSTATE CANCER
     Dates: start: 20080320

REACTIONS (1)
  - CARDIOPULMONARY FAILURE [None]
